FAERS Safety Report 23224444 (Version 1)
Quarter: 2023Q4

REPORT INFORMATION
  Report Type: Spontaneous
  Country: CH (occurrence: None)
  Receive Date: 20231124
  Receipt Date: 20231124
  Transmission Date: 20240110
  Serious: Yes (Other)
  Sender: FDA-Public Use
  Company Number: 2023A264397

PATIENT
  Sex: Male

DRUGS (3)
  1. LYNPARZA [Suspect]
     Active Substance: OLAPARIB
     Indication: Prostate cancer recurrent
     Dosage: 4 X 150MG
     Route: 048
     Dates: start: 202203, end: 2022
  2. LYNPARZA [Suspect]
     Active Substance: OLAPARIB
     Indication: Prostate cancer recurrent
     Dosage: 2 X 150 MG
     Route: 048
     Dates: start: 2022, end: 2022
  3. LYNPARZA [Suspect]
     Active Substance: OLAPARIB
     Indication: Prostate cancer recurrent
     Route: 048

REACTIONS (5)
  - Nephrolithiasis [Unknown]
  - Laboratory test abnormal [Unknown]
  - Cough [Unknown]
  - Fatigue [Unknown]
  - Vomiting [Unknown]

NARRATIVE: CASE EVENT DATE: 20220101
